FAERS Safety Report 20001749 (Version 1)
Quarter: 2021Q4

REPORT INFORMATION
  Report Type: Spontaneous
  Country: TR (occurrence: TR)
  Receive Date: 20211027
  Receipt Date: 20211027
  Transmission Date: 20220303
  Serious: Yes (Other)
  Sender: FDA-Public Use
  Company Number: TR-AMNEAL PHARMACEUTICALS-2021-AMRX-04276

PATIENT
  Age: 22 Year
  Sex: Male

DRUGS (2)
  1. ALBENZA [Suspect]
     Active Substance: ALBENDAZOLE
     Indication: Prophylaxis
     Dosage: 15 MILLIGRAM/KILOGRAM, DAILY
     Route: 065
  2. ALBENZA [Suspect]
     Active Substance: ALBENDAZOLE
     Indication: Echinococciasis

REACTIONS (1)
  - Drug ineffective [Unknown]
